FAERS Safety Report 19277244 (Version 1)
Quarter: 2021Q2

REPORT INFORMATION
  Report Type: Spontaneous
  Country: US (occurrence: US)
  Receive Date: 20210519
  Receipt Date: 20210519
  Transmission Date: 20210717
  Serious: No
  Sender: FDA-Public Use
  Company Number: US-DRREDDYS-USA/USA/21/0135414

PATIENT
  Age: 73 Year
  Sex: Female
  Weight: 94.5 kg

DRUGS (1)
  1. FLUCONAZOLE. [Suspect]
     Active Substance: FLUCONAZOLE
     Indication: FUNGAL INFECTION
     Dosage: ONE TABLET ONE DOSE
     Dates: start: 20210507, end: 20210507

REACTIONS (3)
  - Peripheral swelling [Unknown]
  - Rash erythematous [Not Recovered/Not Resolved]
  - Urticaria [Unknown]
